FAERS Safety Report 12987962 (Version 1)
Quarter: 2016Q4

REPORT INFORMATION
  Report Type: Spontaneous
  Country: GB (occurrence: GB)
  Receive Date: 20161130
  Receipt Date: 20161130
  Transmission Date: 20170207
  Serious: Yes (Disabling)
  Sender: FDA-Public Use
  Company Number: GB-TEVA-714711ACC

PATIENT
  Age: 74 Year
  Sex: Male
  Weight: 82 kg

DRUGS (12)
  1. LANSOPRAZOLE. [Concomitant]
     Active Substance: LANSOPRAZOLE
     Dosage: 1 DOSAGE FORMS DAILY;
     Dates: start: 20120727
  2. WARFARIN SODIUM. [Concomitant]
     Active Substance: WARFARIN SODIUM
     Dosage: AS DIRECTED.
     Dates: start: 20120110
  3. FUROSEMIDE. [Concomitant]
     Active Substance: FUROSEMIDE
     Dosage: 3 DOSAGE FORMS DAILY; TAKE 2 IN MORNING,  1 AT 2PM.
     Dates: start: 20120104
  4. COZAAR [Concomitant]
     Active Substance: LOSARTAN POTASSIUM
     Dosage: 1 DOSAGE FORMS DAILY;
     Dates: start: 20160919
  5. LOSARTAN. [Concomitant]
     Active Substance: LOSARTAN
     Dosage: 1 DOSAGE FORMS DAILY;
     Dates: start: 20160210, end: 20160919
  6. ACULAR [Concomitant]
     Active Substance: KETOROLAC TROMETHAMINE
     Dosage: 3 GTT DAILY;
     Dates: start: 20160907
  7. ATORVASTATIN [Concomitant]
     Active Substance: ATORVASTATIN
     Dosage: 1 DOSAGE FORMS DAILY;
     Dates: start: 20161103
  8. BISOPROLOL [Concomitant]
     Active Substance: BISOPROLOL
     Dosage: 1 DOSAGE FORMS DAILY;
     Dates: start: 20160120
  9. TAMSULOSIN HYDROCHLORIDE. [Concomitant]
     Active Substance: TAMSULOSIN HYDROCHLORIDE
     Dosage: 1 DOSAGE FORMS DAILY;
     Dates: start: 20150914
  10. SIMVASTATIN. [Suspect]
     Active Substance: SIMVASTATIN
     Dates: start: 20140922
  11. DIGOXIN. [Concomitant]
     Active Substance: DIGOXIN
     Dosage: 1 DOSAGE FORMS DAILY;
     Dates: start: 20130520
  12. SPIRONOLACTONE. [Concomitant]
     Active Substance: SPIRONOLACTONE
     Dosage: 1 DOSAGE FORMS DAILY;
     Dates: start: 20120104

REACTIONS (2)
  - Insomnia [Recovering/Resolving]
  - Burning feet syndrome [Recovering/Resolving]

NARRATIVE: CASE EVENT DATE: 20141107
